FAERS Safety Report 6679938-0 (Version None)
Quarter: 2010Q2

REPORT INFORMATION
  Report Type: 
  Country: None (occurrence: None)
  Receive Date: 20100413
  Receipt Date: 20100331
  Transmission Date: 20101027
  Serious: Yes (Hospitalization)
  Sender: FDA-Public Use
  Company Number: GR-ELI_LILLY_AND_COMPANY-GR201004000177

PATIENT
  Age: 92 Year
  Sex: Female

DRUGS (4)
  1. FORTEO [Suspect]
     Indication: OSTEOPOROSIS
     Dosage: 20 UG, DAILY (1/D)
     Route: 058
     Dates: start: 20090801
  2. NEMASOLE [Concomitant]
     Indication: THYROID DISORDER
     Dosage: 5 MG, 2/D
     Route: 048
  3. SALOSPIR                           /00002701/ [Concomitant]
     Indication: PROPHYLAXIS
     Dosage: 100 MG, DAILY (1/D)
     Route: 048
  4. MEDROL [Concomitant]
     Dosage: 4 MG, 2/D
     Route: 048

REACTIONS (5)
  - ACCIDENTAL OVERDOSE [None]
  - BACK PAIN [None]
  - HYPERTENSION [None]
  - MALAISE [None]
  - TACHYCARDIA [None]
